FAERS Safety Report 17576051 (Version 2)
Quarter: 2020Q2

REPORT INFORMATION
  Report Type: Spontaneous
  Country: None (occurrence: US)
  Receive Date: 20200324
  Receipt Date: 20200406
  Transmission Date: 20200713
  Serious: No
  Sender: FDA-Public Use
  Company Number: US-MISSION PHARMACAL COMPANY-2081918

PATIENT
  Sex: Female

DRUGS (1)
  1. TINIDAZOLE. [Suspect]
     Active Substance: TINIDAZOLE
     Indication: TREMATODE INFECTION

REACTIONS (4)
  - Drug ineffective [Unknown]
  - Hypothermia [Unknown]
  - Poor quality sleep [Unknown]
  - Cardiac flutter [Unknown]
